FAERS Safety Report 4526233-1 (Version None)
Quarter: 2004Q4

REPORT INFORMATION
  Report Type: 
  Country: None (occurrence: None)
  Receive Date: 20041210
  Receipt Date: 20041203
  Transmission Date: 20050328
  Serious: Yes (Hospitalization)
  Sender: FDA-Public Use
  Company Number: 2004UW24749

PATIENT
  Age: 77 Year
  Sex: Male

DRUGS (1)
  1. ZOLADEX [Suspect]
     Dosage: 10.8 MG DAILY SQ
     Route: 058
     Dates: start: 20041201

REACTIONS (1)
  - INJECTION SITE HAEMORRHAGE [None]
